FAERS Safety Report 24033887 (Version 1)
Quarter: 2024Q3

REPORT INFORMATION
  Report Type: Report from Study
  Country: US (occurrence: US)
  Receive Date: 20240701
  Receipt Date: 20240701
  Transmission Date: 20241016
  Serious: Yes (Other)
  Sender: ABBVIE
  Company Number: US-ABBVIE-5773633

PATIENT
  Sex: Male

DRUGS (1)
  1. SKYRIZI [Suspect]
     Active Substance: RISANKIZUMAB-RZAA
     Indication: Psoriasis
     Route: 058
     Dates: start: 20231016

REACTIONS (4)
  - Skin cancer [Recovered/Resolved]
  - Nephrolithiasis [Not Recovered/Not Resolved]
  - Back pain [Unknown]
  - Memory impairment [Unknown]
